FAERS Safety Report 9467549 (Version 1)
Quarter: 2013Q3

REPORT INFORMATION
  Report Type: Spontaneous
  Country: US (occurrence: None)
  Receive Date: 20130819
  Receipt Date: 20130819
  Transmission Date: 20140515
  Serious: Yes (Death)
  Sender: FDA-Public Use
  Company Number: None

PATIENT
  Age: 82 Year
  Sex: Female
  Weight: 91 kg

DRUGS (14)
  1. XARELTO 15 MG JANSSEN [Suspect]
     Indication: DEEP VEIN THROMBOSIS
     Route: 048
     Dates: start: 20130703, end: 20130711
  2. POTASSIUM CHLORIDE [Concomitant]
  3. ALLOPURINOL [Concomitant]
  4. DILTIALZEM CR [Concomitant]
  5. ENOXAPARIN [Concomitant]
  6. FAMOTIDINE [Concomitant]
  7. GUANFACINE [Concomitant]
  8. LEVOFLOXACIN [Concomitant]
  9. METRONIDAZOLE [Concomitant]
  10. NEBIVOLOL [Concomitant]
  11. PANTOPRAZOLE [Concomitant]
  12. PRAVASTATIN [Concomitant]
  13. RIVAROXABAN [Concomitant]
  14. VANCOMYCIN [Concomitant]

REACTIONS (3)
  - Hypotension [None]
  - Shock [None]
  - Retroperitoneal haematoma [None]
